FAERS Safety Report 6225545-3 (Version None)
Quarter: 2009Q2

REPORT INFORMATION
  Report Type: 
  Country: None (occurrence: None)
  Receive Date: 20090612
  Receipt Date: 20090421
  Transmission Date: 20091009
  Serious: No
  Sender: FDA-Public Use
  Company Number: US-ABBOTT-09P-163-0569612-00

PATIENT
  Sex: Female
  Weight: 59.02 kg

DRUGS (2)
  1. HUMIRA [Suspect]
     Indication: SERONEGATIVE ARTHRITIS
     Route: 058
     Dates: start: 20080901
  2. METHOTREXATE [Concomitant]
     Indication: SERONEGATIVE ARTHRITIS
     Dosage: 5 TABS EVERY WEEK
     Route: 048

REACTIONS (3)
  - DRUG INEFFECTIVE [None]
  - INJECTION SITE IRRITATION [None]
  - PAIN [None]
